FAERS Safety Report 10757123 (Version 2)
Quarter: 2015Q1

REPORT INFORMATION
  Report Type: Spontaneous
  Country: FR (occurrence: FR)
  Receive Date: 20150203
  Receipt Date: 20150211
  Transmission Date: 20150721
  Serious: Yes (Hospitalization)
  Sender: FDA-Public Use
  Company Number: FR-PFIZER INC-2015035991

PATIENT
  Age: 16 Year
  Sex: Female

DRUGS (2)
  1. ADVIL [Suspect]
     Active Substance: IBUPROFEN
     Indication: DYSMENORRHOEA
     Dosage: 1 DF, SINGLE
     Route: 048
     Dates: start: 20141207, end: 20141207
  2. ANTADYS [Suspect]
     Active Substance: FLURBIPROFEN
     Indication: DYSMENORRHOEA
     Dosage: 1 DF, 2X/DAY
     Route: 048
     Dates: start: 20141204, end: 20141205

REACTIONS (1)
  - Acute kidney injury [Recovered/Resolved]

NARRATIVE: CASE EVENT DATE: 20141208
